FAERS Safety Report 8757743 (Version 3)
Quarter: 2012Q4

REPORT INFORMATION
  Report Type: 
  Country: US (occurrence: US)
  Receive Date: 20120828
  Receipt Date: 20121017
  Transmission Date: 20130627
  Serious: Yes (Hospitalization, Other)
  Sender: FDA-Public Use
  Company Number: US-ASTRAZENECA-2000TU00087

PATIENT
  Age: 60 Year
  Sex: Male
  Weight: 77.1 kg

DRUGS (3)
  1. TOPROL-XL [Suspect]
     Indication: HEART RATE IRREGULAR
     Route: 048
     Dates: start: 1999
  2. TOPROL-XL [Suspect]
     Indication: HEART RATE IRREGULAR
     Dosage: generic
     Route: 048
  3. ASPRIN [Concomitant]

REACTIONS (9)
  - Post procedural complication [Unknown]
  - Heart rate increased [Recovered/Resolved]
  - Chest pain [Recovered/Resolved]
  - Cardiac failure [Unknown]
  - Heart rate irregular [Recovered/Resolved]
  - Cardiac failure congestive [None]
  - Cardiac disorder [Unknown]
  - Impaired work ability [Unknown]
  - Drug ineffective [Unknown]
